FAERS Safety Report 7558019-8 (Version None)
Quarter: 2011Q2

REPORT INFORMATION
  Report Type: 
  Country: None (occurrence: None)
  Receive Date: 20110620
  Receipt Date: 20110512
  Transmission Date: 20111010
  Serious: Yes (Other)
  Sender: FDA-Public Use
  Company Number: PHHY2011IT41171

PATIENT
  Sex: Female

DRUGS (1)
  1. DIAZEPAM [Suspect]
     Indication: SUICIDE ATTEMPT
     Dosage: 40 ML
     Route: 048
     Dates: start: 20110404, end: 20110404

REACTIONS (5)
  - DIZZINESS [None]
  - SOMNOLENCE [None]
  - SUICIDE ATTEMPT [None]
  - HYPOTENSION [None]
  - TACHYCARDIA [None]
